FAERS Safety Report 15791364 (Version 2)
Quarter: 2019Q1

REPORT INFORMATION
  Report Type: Spontaneous
  Country: FR (occurrence: FR)
  Receive Date: 20190104
  Receipt Date: 20190115
  Transmission Date: 20190417
  Serious: Yes (Other)
  Sender: FDA-Public Use
  Company Number: US-PFIZER INC-2018534635

PATIENT
  Age: 38 Year
  Sex: Male

DRUGS (4)
  1. THROMBIN [Suspect]
     Active Substance: THROMBIN
     Dosage: 12.500 IU, UNK
  2. THROMBIN [Suspect]
     Active Substance: THROMBIN
     Dosage: 2500 IU, UNK
  3. THROMBIN [Suspect]
     Active Substance: THROMBIN
     Dosage: 10000 IU, UNK
  4. FIBRIN SEALANT NOS [Suspect]
     Active Substance: FIBRINOGEN HUMAN\THROMBIN HUMAN
     Dosage: UNK

REACTIONS (4)
  - Prothrombin time prolonged [Unknown]
  - Activated partial thromboplastin time prolonged [Unknown]
  - Thrombin time prolonged [Unknown]
  - Coagulation factor V level decreased [Unknown]
